FAERS Safety Report 9983540 (Version 1)
Quarter: 2014Q1

REPORT INFORMATION
  Report Type: Spontaneous
  Country: FR (occurrence: FR)
  Receive Date: 20140307
  Receipt Date: 20140307
  Transmission Date: 20141002
  Serious: Yes (Hospitalization)
  Sender: FDA-Public Use
  Company Number: FR-JNJFOC-20140215239

PATIENT
  Age: 85 Year
  Sex: Female
  Weight: 23.5 kg

DRUGS (6)
  1. HALDOL [Suspect]
     Indication: MENTAL DISORDER
     Route: 048
     Dates: start: 20131231, end: 20140104
  2. AMLODIPINE [Suspect]
     Indication: HYPERTENSION
     Route: 048
     Dates: start: 20131231, end: 20140104
  3. PERINDOPRIL [Suspect]
     Indication: HYPERTENSION
     Route: 048
     Dates: start: 20131231, end: 20140104
  4. TIAPRIDAL [Suspect]
     Indication: HYPERTENSION
     Route: 048
     Dates: start: 20131231, end: 20140104
  5. ARIXTRA [Concomitant]
     Route: 042
  6. PARACETAMOL [Concomitant]
     Route: 048

REACTIONS (8)
  - Migraine [Recovered/Resolved]
  - Renal artery stenosis [Unknown]
  - Hypotension [Recovered/Resolved]
  - Bradycardia [Recovered/Resolved]
  - Electrocardiogram QT prolonged [Unknown]
  - Malaise [Recovered/Resolved]
  - Cortisol free urine increased [Unknown]
  - Blood cortisol increased [Unknown]
